FAERS Safety Report 9266827 (Version 2)
Quarter: 2013Q2

REPORT INFORMATION
  Report Type: Spontaneous
  Country: US (occurrence: US)
  Receive Date: 20130502
  Receipt Date: 20130527
  Transmission Date: 20140414
  Serious: Yes (Other)
  Sender: FDA-Public Use
  Company Number: US-009507513-1304USA017261

PATIENT
  Age: 55 Year
  Sex: Female

DRUGS (2)
  1. REBETOL [Suspect]
     Indication: HEPATITIS C
     Dosage: UNK
     Route: 048
     Dates: start: 201110, end: 201202
  2. INTERFERON (UNSPECIFIED) [Suspect]
     Dosage: UNK
     Dates: start: 201110, end: 201202

REACTIONS (2)
  - Pancytopenia [Unknown]
  - Drug ineffective [Unknown]
